FAERS Safety Report 8901301 (Version 4)
Quarter: 2013Q4

REPORT INFORMATION
  Report Type: Spontaneous
  Country: US (occurrence: US)
  Receive Date: 20121109
  Receipt Date: 20131204
  Transmission Date: 20140711
  Serious: No
  Sender: FDA-Public Use
  Company Number: US-PFIZER INC-2012273956

PATIENT
  Sex: Female

DRUGS (6)
  1. GLUCOTROL XL [Suspect]
     Dosage: UNK
  2. LIPITOR [Suspect]
     Indication: BLOOD CHOLESTEROL INCREASED
     Dosage: UNK
  3. ZOLOFT [Suspect]
     Indication: ANXIETY
     Dosage: UNK
  4. ZOLOFT [Suspect]
     Indication: PANIC ATTACK
  5. AMLODIPINE BESILATE [Suspect]
     Indication: HYPERTENSION
     Dosage: UNK
  6. NORVASC [Suspect]
     Dosage: UNK

REACTIONS (5)
  - Memory impairment [Unknown]
  - Feeling abnormal [Unknown]
  - Fatigue [Unknown]
  - Heart rate increased [Unknown]
  - Blood iron decreased [Unknown]
